FAERS Safety Report 9037427 (Version 1)
Quarter: 2013Q1

REPORT INFORMATION
  Report Type: Spontaneous
  Country: US (occurrence: None)
  Receive Date: 20130123
  Receipt Date: 20130123
  Transmission Date: 20140127
  Serious: Yes (Hospitalization)
  Sender: FDA-Public Use
  Company Number: None

PATIENT
  Age: 49 Year
  Sex: Female
  Weight: 93.44 kg

DRUGS (1)
  1. LISINOPRIL-HYDROCHLOROTHIAZIDE [Suspect]
     Indication: HYPERTENSION
     Route: 048
     Dates: start: 20130108, end: 20130113

REACTIONS (4)
  - Dyspnoea [None]
  - Wheezing [None]
  - Dysphonia [None]
  - Angioedema [None]
